FAERS Safety Report 7092442-3 (Version None)
Quarter: 2010Q4

REPORT INFORMATION
  Report Type: 
  Country: None (occurrence: None)
  Receive Date: 20101108
  Receipt Date: 20101108
  Transmission Date: 20110411
  Serious: Yes (Other)
  Sender: FDA-Public Use
  Company Number: None

PATIENT
  Age: 14 Year
  Sex: Male
  Weight: 88.4514 kg

DRUGS (1)
  1. TYLENOL EXTRA STRENGTH ^COOL CAPLETS^ 500MG MCNEIL [Suspect]
     Indication: HEADACHE
     Dosage: 500MG ONCE BY MOUTH
     Route: 048
     Dates: start: 20101104

REACTIONS (2)
  - ORAL DISORDER [None]
  - PARAESTHESIA ORAL [None]
